FAERS Safety Report 23607251 (Version 1)
Quarter: 2024Q1

REPORT INFORMATION
  Report Type: Spontaneous
  Country: CN (occurrence: None)
  Receive Date: 20240307
  Receipt Date: 20240307
  Transmission Date: 20240410
  Serious: Yes (Hospitalization)
  Sender: FDA-Public Use
  Company Number: 2024A052453

PATIENT
  Age: 13634 Day
  Sex: Male
  Weight: 77 kg

DRUGS (2)
  1. OMEPRAZOLE [Suspect]
     Active Substance: OMEPRAZOLE
     Indication: Abdominal discomfort
     Route: 048
     Dates: start: 20240209, end: 20240215
  2. HYDROTALCITE [Suspect]
     Active Substance: HYDROTALCITE
     Indication: Abdominal discomfort
     Route: 048
     Dates: start: 20240209, end: 20240215

REACTIONS (3)
  - Erythema [Recovering/Resolving]
  - Papule [Recovering/Resolving]
  - Pruritus [Recovering/Resolving]

NARRATIVE: CASE EVENT DATE: 20240216
